FAERS Safety Report 7384401-8 (Version None)
Quarter: 2011Q1

REPORT INFORMATION
  Report Type: 
  Country: None (occurrence: None)
  Receive Date: 20110330
  Receipt Date: 20100909
  Transmission Date: 20110831
  Serious: Yes (Hospitalization, Other)
  Sender: FDA-Public Use
  Company Number: US-BAYER-200938232NA

PATIENT
  Sex: Female
  Weight: 114 kg

DRUGS (7)
  1. YAZ [Suspect]
     Indication: ORAL CONTRACEPTION
     Dosage: 1 TAB/DAY
     Route: 048
     Dates: start: 20070701, end: 20090301
  2. YAZ [Suspect]
     Indication: PREMENSTRUAL SYNDROME
  3. LIPITOR [Concomitant]
     Dosage: UNK
     Dates: start: 20081101
  4. HYDROCHLOROTHIAZIDE [Concomitant]
     Dosage: UNK
     Dates: start: 20090501, end: 20100101
  5. CIPROFLOXACIN [Concomitant]
     Dosage: UNK UNK, PRN
  6. LEVAQUIN [Concomitant]
     Dosage: UNK UNK, PRN
  7. IBUPROFEN [Concomitant]
     Dosage: UNK
     Dates: start: 20081101

REACTIONS (2)
  - DEEP VEIN THROMBOSIS [None]
  - PAIN [None]
